FAERS Safety Report 24294130 (Version 1)
Quarter: 2024Q3

REPORT INFORMATION
  Report Type: Spontaneous
  Country: US (occurrence: None)
  Receive Date: 20240906
  Receipt Date: 20240906
  Transmission Date: 20241016
  Serious: No
  Sender: DOMPE FARMACEUTICI
  Company Number: US-FARMAPROD-202308-202404-1607

PATIENT
  Age: 76 Year
  Sex: Male

DRUGS (28)
  1. OXERVATE [Suspect]
     Active Substance: CENEGERMIN-BKBJ
     Indication: Neurotrophic keratopathy
     Route: 047
     Dates: start: 20240409
  2. OXERVATE [Suspect]
     Active Substance: CENEGERMIN-BKBJ
  3. FELODIPINE [Concomitant]
     Active Substance: FELODIPINE
     Dosage: EXTENDED RELEADE 24 HOURS.
  4. ACETAMINOPHEN\HYDROCODONE [Concomitant]
     Active Substance: ACETAMINOPHEN\HYDROCODONE
  5. OXYCODONE HYDROCHLORIDE [Concomitant]
     Active Substance: OXYCODONE HYDROCHLORIDE
  6. ZOLPIDEM TARTRATE [Concomitant]
     Active Substance: ZOLPIDEM TARTRATE
  7. GABAPENTIN [Concomitant]
     Active Substance: GABAPENTIN
  8. ATORVASTATIN CALCIUM [Concomitant]
     Active Substance: ATORVASTATIN CALCIUM
  9. FAMOTIDINE [Concomitant]
     Active Substance: FAMOTIDINE
  10. TAMSULOSIN HYDROCHLORIDE [Concomitant]
     Active Substance: TAMSULOSIN HYDROCHLORIDE
  11. VITAMIN B12 [Concomitant]
     Active Substance: CYANOCOBALAMIN
  12. VITAMIN C [Concomitant]
     Active Substance: ASCORBIC ACID
  13. VITAMIN D3 [Concomitant]
     Active Substance: CHOLECALCIFEROL
  14. VITAMINS [Concomitant]
     Active Substance: VITAMINS
  15. CALCIUM CITRATE [Concomitant]
     Active Substance: CALCIUM CITRATE
  16. UBIQUINOL [Concomitant]
     Active Substance: UBIQUINOL
  17. CURCUMIN [Concomitant]
     Active Substance: CURCUMIN
  18. ASPIRIN [Concomitant]
     Active Substance: ASPIRIN
  19. SENNA [Concomitant]
     Active Substance: SENNA LEAF\SENNOSIDES\SENNOSIDES A AND B
  20. DOCUSATE SODIUM [Concomitant]
     Active Substance: DOCUSATE SODIUM
     Dosage: 50 MG/5 MLLIQUID
  21. MELATONIN [Concomitant]
     Active Substance: MELATONIN
  22. TRAVOPROST [Concomitant]
     Active Substance: TRAVOPROST
  23. RESTASIS [Concomitant]
     Active Substance: CYCLOSPORINE
  24. TIMOLOL MALEATE [Concomitant]
     Active Substance: TIMOLOL MALEATE
  25. MIRALAX [Concomitant]
     Active Substance: POLYETHYLENE GLYCOL 3350
  26. BACLOFEN [Concomitant]
     Active Substance: BACLOFEN
  27. METOPROLOL SUCCINATE [Concomitant]
     Active Substance: METOPROLOL SUCCINATE
  28. HYDROCHLOROTHIAZIDE\LOSARTAN [Concomitant]
     Active Substance: HYDROCHLOROTHIAZIDE\LOSARTAN

REACTIONS (8)
  - Eye pain [Not Recovered/Not Resolved]
  - Eyelid pain [Not Recovered/Not Resolved]
  - Dry eye [Unknown]
  - Sinus disorder [Not Recovered/Not Resolved]
  - Stress [Unknown]
  - Intentional product misuse [Unknown]
  - Underdose [Unknown]
  - Vision blurred [Unknown]

NARRATIVE: CASE EVENT DATE: 20240423
